FAERS Safety Report 23905680 (Version 2)
Quarter: 2024Q2

REPORT INFORMATION
  Report Type: Spontaneous
  Country: US (occurrence: US)
  Receive Date: 20240527
  Receipt Date: 20240611
  Transmission Date: 20240716
  Serious: Yes (Hospitalization, Other)
  Sender: FDA-Public Use
  Company Number: US-BRISTOL-MYERS SQUIBB COMPANY-2024-076524

PATIENT
  Age: 77 Year
  Sex: Female

DRUGS (5)
  1. LENALIDOMIDE [Suspect]
     Active Substance: LENALIDOMIDE
     Indication: Plasma cell myeloma
     Dosage: TAKE 1 CAPSULE BY MOUTH DAILY FOR 21 DAYS OF EACH 28 DAY CYCLE
     Route: 048
  2. GABAPENTIN [Suspect]
     Active Substance: GABAPENTIN
     Indication: Neuralgia
  3. GABAPENTIN [Suspect]
     Active Substance: GABAPENTIN
     Dosage: AT NIGHT
  4. DARZALEX [Suspect]
     Active Substance: DARATUMUMAB
     Indication: Product used for unknown indication
  5. ASPIRIN [Concomitant]
     Active Substance: ASPIRIN
     Indication: Product used for unknown indication

REACTIONS (8)
  - Arthropathy [Recovering/Resolving]
  - Atrial flutter [Recovering/Resolving]
  - Atrial fibrillation [Recovering/Resolving]
  - Neuralgia [Recovering/Resolving]
  - Somnolence [Recovering/Resolving]
  - White blood cell count decreased [Recovering/Resolving]
  - Protein total decreased [Recovering/Resolving]
  - Skin cancer [Recovering/Resolving]
